FAERS Safety Report 5515067-7 (Version None)
Quarter: 2007Q4

REPORT INFORMATION
  Report Type: 
  Country: None (occurrence: None)
  Receive Date: 20071113
  Receipt Date: 20061213
  Transmission Date: 20080405
  Serious: Yes (Other)
  Sender: FDA-Public Use
  Company Number: A0631448A

PATIENT
  Age: 53 Year
  Sex: Male

DRUGS (6)
  1. CARVEDILOL [Suspect]
     Indication: LEFT VENTRICULAR DYSFUNCTION
     Dosage: 3.125MG TWICE PER DAY
     Route: 048
     Dates: start: 20060910
  2. PLAVIX [Concomitant]
  3. ZESTRIL [Concomitant]
  4. LIPITOR [Concomitant]
  5. LIPITOR [Concomitant]
  6. OXYCODONE HCL [Concomitant]

REACTIONS (3)
  - DIZZINESS [None]
  - ORTHOSTATIC HYPOTENSION [None]
  - SYNCOPE [None]
